FAERS Safety Report 4610078-8 (Version None)
Quarter: 2005Q1

REPORT INFORMATION
  Report Type: 
  Country: None (occurrence: None)
  Receive Date: 20050315
  Receipt Date: 20050307
  Transmission Date: 20050727
  Serious: Yes (Death)
  Sender: FDA-Public Use
  Company Number: GXKR2005PL00718

PATIENT
  Age: 29 Year
  Sex: Female

DRUGS (3)
  1. AMOKSIKLAV (NGX) (AMOXICILLIN, CLAVULANATE) TABLET, 1000MG [Suspect]
     Indication: INFECTION
     Dosage: ORAL
     Route: 048
  2. RULID (ROXITHROMYCIN) [Concomitant]
  3. LAMOTRIGINE [Concomitant]

REACTIONS (2)
  - CARDIAC ARREST [None]
  - FEELING ABNORMAL [None]
